FAERS Safety Report 9201916 (Version 1)
Quarter: 2013Q1

REPORT INFORMATION
  Report Type: Spontaneous
  Country: QA (occurrence: None)
  Receive Date: 20130327
  Receipt Date: 20130327
  Transmission Date: 20140127
  Serious: Yes (Hospitalization)
  Sender: FDA-Public Use
  Company Number: 146808

PATIENT
  Age: 51 Year
  Sex: Female
  Weight: 55 kg

DRUGS (2)
  1. ETOPOSIDE [Suspect]
  2. CYTARABINE [Suspect]

REACTIONS (3)
  - Hypophosphataemia [None]
  - Neutropenia [None]
  - Leukopenia [None]
